FAERS Safety Report 8102340 (Version 3)
Quarter: 2013Q3

REPORT INFORMATION
  Report Type: Spontaneous
  Country: US (occurrence: US)
  Receive Date: 20110823
  Receipt Date: 20130822
  Transmission Date: 20140515
  Serious: Yes (Hospitalization, Other)
  Sender: FDA-Public Use
  Company Number: US-BAYER-2011-074968

PATIENT
  Age: 24 Year
  Sex: Female
  Weight: 68.03 kg

DRUGS (3)
  1. YASMIN [Suspect]
     Indication: CONTRACEPTION
     Dosage: UNK
     Dates: start: 200303, end: 200306
  2. PHENAZOPYRIDINE [Concomitant]
     Dosage: 200 MG, UNK
     Dates: start: 20030310
  3. SULFAMETHOXAZOLE/TRIMETHOPRIM [Concomitant]
     Dosage: 800-160
     Dates: start: 20030310

REACTIONS (4)
  - Deep vein thrombosis [Recovered/Resolved]
  - Thrombosis [None]
  - Injury [None]
  - Pain [None]
